FAERS Safety Report 4463359-5 (Version None)
Quarter: 2004Q3

REPORT INFORMATION
  Report Type: 
  Country: None (occurrence: None)
  Receive Date: 20040928
  Receipt Date: 20040924
  Transmission Date: 20050211
  Serious: Yes (Life-Threatening)
  Sender: FDA-Public Use
  Company Number: HQWYE306521JUL04

PATIENT
  Age: 55 Year
  Sex: Female

DRUGS (1)
  1. PREMELLE     (CONJUGATED ESTROGENS/MEDROXYPROGESTERONE ACETATE) [Suspect]
     Indication: HORMONE REPLACEMENT THERAPY
     Route: 048
     Dates: start: 20021121, end: 20040706

REACTIONS (2)
  - CERVIX CARCINOMA [None]
  - METRORRHAGIA [None]
